FAERS Safety Report 16151440 (Version 1)
Quarter: 2019Q2

REPORT INFORMATION
  Report Type: Spontaneous
  Country: US (occurrence: US)
  Receive Date: 20190403
  Receipt Date: 20190403
  Transmission Date: 20190711
  Serious: No
  Sender: FDA-Public Use
  Company Number: US-UPSHER-SMITH LABORATORIES, LLC-2018USL00373

PATIENT
  Sex: Female

DRUGS (2)
  1. EIGHTEEN OTHER UNSPECIFIED MEDICATIONS [Concomitant]
  2. PREVALITE [Suspect]
     Active Substance: CHOLESTYRAMINE

REACTIONS (1)
  - Coeliac disease [Not Recovered/Not Resolved]
